FAERS Safety Report 15648250 (Version 1)
Quarter: 2018Q4

REPORT INFORMATION
  Report Type: Spontaneous
  Country: DE (occurrence: DE)
  Receive Date: 20181122
  Receipt Date: 20181122
  Transmission Date: 20190205
  Serious: Yes (Disabling, Other)
  Sender: FDA-Public Use
  Company Number: PHHY2018DE160774

PATIENT
  Age: 61 Year
  Sex: Male

DRUGS (2)
  1. CERTICAN [Suspect]
     Active Substance: EVEROLIMUS
     Indication: RENAL TRANSPLANT
  2. CERTICAN [Suspect]
     Active Substance: EVEROLIMUS
     Indication: IMMUNOSUPPRESSANT DRUG THERAPY
     Dosage: 6-8 ?G/ML
     Route: 048

REACTIONS (7)
  - Nephropathy [Unknown]
  - BK virus infection [Unknown]
  - Proteinuria [Unknown]
  - Transplant rejection [Unknown]
  - Renal impairment [Unknown]
  - Renal disorder [Unknown]
  - Post transplant lymphoproliferative disorder [Unknown]
